FAERS Safety Report 17262989 (Version 3)
Quarter: 2020Q1

REPORT INFORMATION
  Report Type: Spontaneous
  Country: TW (occurrence: TW)
  Receive Date: 20200113
  Receipt Date: 20200116
  Transmission Date: 20200409
  Serious: Yes (Death, Hospitalization, Other)
  Sender: FDA-Public Use
  Company Number: TW-PFIZER INC-2020010145

PATIENT
  Age: 52 Year
  Sex: Male

DRUGS (6)
  1. AZATHIOPRINE. [Suspect]
     Active Substance: AZATHIOPRINE
     Indication: CUTANEOUS VASCULITIS
     Dosage: 100 MG, DAILY
  2. PREDNISOLONE. [Suspect]
     Active Substance: PREDNISOLONE
     Indication: CUTANEOUS VASCULITIS
     Dosage: 10 MG, DAILY
  3. AZATHIOPRINE. [Suspect]
     Active Substance: AZATHIOPRINE
     Indication: IMMUNOSUPPRESSANT DRUG THERAPY
  4. METHOTREXATE. [Suspect]
     Active Substance: METHOTREXATE
     Indication: CUTANEOUS VASCULITIS
     Dosage: 12.5 MG, WEEKLY
  5. METHOTREXATE. [Suspect]
     Active Substance: METHOTREXATE
     Indication: IMMUNOSUPPRESSANT DRUG THERAPY
  6. PREDNISOLONE. [Suspect]
     Active Substance: PREDNISOLONE
     Indication: IMMUNOSUPPRESSANT DRUG THERAPY

REACTIONS (6)
  - Septic shock [Fatal]
  - Multiple organ dysfunction syndrome [Fatal]
  - Lactic acidosis [Fatal]
  - Coagulopathy [Fatal]
  - Herpes virus infection [Unknown]
  - Varicella zoster virus infection [Fatal]
